FAERS Safety Report 4558082-2 (Version None)
Quarter: 2005Q1

REPORT INFORMATION
  Report Type: 
  Country: None (occurrence: None)
  Receive Date: 20050121
  Receipt Date: 20041006
  Transmission Date: 20050727
  Serious: No
  Sender: FDA-Public Use
  Company Number: US-BRISTOL-MYERS SQUIBB COMPANY-12723953

PATIENT
  Age: 41 Year
  Sex: Male
  Weight: 96 kg

DRUGS (6)
  1. SERZONE [Suspect]
     Indication: DEPRESSION
     Route: 048
     Dates: end: 20041003
  2. KLONOPIN [Concomitant]
     Dosage: ^FOR THE PAST 2-3 YEARS^
  3. SINGULAIR [Concomitant]
  4. CARDIZEM [Concomitant]
     Dosage: ^FOR A LONG TIME^
  5. BEXTRA [Concomitant]
     Dosage: ^FOR A LONG TIME^ UNTIL SWITCHED TO IBUPROFEN LESS THAN A YEAR AGO
  6. IBUPROFEN [Concomitant]
     Dosage: SWITCHED TO IBUPROFEN LESS THAN A YEAR AGO

REACTIONS (1)
  - HEPATITIS C [None]
